FAERS Safety Report 14198793 (Version 5)
Quarter: 2022Q2

REPORT INFORMATION
  Report Type: Spontaneous
  Country: US (occurrence: US)
  Receive Date: 20171117
  Receipt Date: 20220411
  Transmission Date: 20220721
  Serious: No
  Sender: FDA-Public Use
  Company Number: US-PFIZER INC-2017348993

PATIENT
  Age: 79 Year
  Sex: Female

DRUGS (5)
  1. IBRANCE [Suspect]
     Active Substance: PALBOCICLIB
     Indication: Malignant pleural effusion
     Dosage: 100 MG, CYCLIC (QD FOR 21 DAYS ON + 7 DAYS OFF) (ONCE DAILY FOR 21 DAYS)
     Route: 048
     Dates: start: 201706
  2. IBRANCE [Suspect]
     Active Substance: PALBOCICLIB
     Indication: Breast cancer female
     Dosage: 100 MG, CYCLIC (21 DAYS 7 DAYS OFF)
     Dates: start: 2017
  3. FASLODEX [Concomitant]
     Active Substance: FULVESTRANT
     Dosage: INJECTED EVERY 28 DAYS INTO HER HIP
     Dates: start: 2017
  4. ATENOLOL [Concomitant]
     Active Substance: ATENOLOL
     Indication: Hypertension
     Dosage: 50MG EVERY NIGHT BY MOUTH
     Route: 048
  5. HYDROCHLOROTHIAZIDE [Concomitant]
     Active Substance: HYDROCHLOROTHIAZIDE
     Indication: Diuretic therapy
     Dosage: 25MG ONCE A DAY BY MOUTH
     Route: 048

REACTIONS (5)
  - Bone pain [Not Recovered/Not Resolved]
  - Visual impairment [Unknown]
  - Asthenia [Unknown]
  - Dry skin [Unknown]
  - Peripheral swelling [Unknown]

NARRATIVE: CASE EVENT DATE: 20180601
